FAERS Safety Report 9536969 (Version 1)
Quarter: 2013Q3

REPORT INFORMATION
  Report Type: Spontaneous
  Country: TR (occurrence: TR)
  Receive Date: 20130919
  Receipt Date: 20130919
  Transmission Date: 20140515
  Serious: Yes (Other)
  Sender: FDA-Public Use
  Company Number: TR-BAYER-2013-112248

PATIENT
  Age: 22 Year
  Sex: Female
  Weight: 50 kg

DRUGS (3)
  1. QLAIRISTA [Suspect]
     Indication: MENSTRUATION IRREGULAR
     Dosage: UNK
  2. QLAIRISTA [Suspect]
     Indication: BREAST CYST
  3. QLAIRISTA [Suspect]
     Indication: DYSMENORRHOEA

REACTIONS (3)
  - Rectal fissure [Recovered/Resolved]
  - Rectal haemorrhage [Recovered/Resolved]
  - Off label use [None]
